FAERS Safety Report 15943592 (Version 1)
Quarter: 2019Q1

REPORT INFORMATION
  Report Type: Report from Study
  Country: MX (occurrence: MX)
  Receive Date: 20190210
  Receipt Date: 20190210
  Transmission Date: 20190417
  Serious: Yes (Life-Threatening, Hospitalization, Other)
  Sender: FDA-Public Use
  Company Number: PHHY2019MX014764

PATIENT
  Sex: Female
  Weight: 61 kg

DRUGS (1)
  1. TEGRETOL [Suspect]
     Active Substance: CARBAMAZEPINE
     Indication: EPILEPSY
     Dosage: 2 DF, QD (1 IN THE MORNING AND 1 AT NIGHT)
     Route: 048
     Dates: start: 1985, end: 2005

REACTIONS (8)
  - Cognitive disorder [Unknown]
  - Eating disorder [Recovered/Resolved]
  - Feeling abnormal [Recovered/Resolved]
  - Toxicity to various agents [Recovered/Resolved]
  - Diabetes mellitus [Unknown]
  - Diplopia [Recovered/Resolved]
  - Vomiting [Recovered/Resolved]
  - Hypothyroidism [Unknown]

NARRATIVE: CASE EVENT DATE: 2003
